FAERS Safety Report 7426088-1 (Version None)
Quarter: 2011Q2

REPORT INFORMATION
  Report Type: 
  Country: None (occurrence: None)
  Receive Date: 20110420
  Receipt Date: 20110407
  Transmission Date: 20111010
  Serious: Yes (Other)
  Sender: FDA-Public Use
  Company Number: PHHY2011DE30089

PATIENT
  Sex: Female
  Weight: 60 kg

DRUGS (1)
  1. SANDOSTATIN LAR [Suspect]

REACTIONS (11)
  - ABDOMINAL PAIN UPPER [None]
  - MALAISE [None]
  - HEPATIC PAIN [None]
  - PRURITUS [None]
  - NAUSEA [None]
  - STAPHYLOCOCCAL INFECTION [None]
  - PHARYNGITIS [None]
  - HYPOAESTHESIA FACIAL [None]
  - UROGENITAL INFECTION BACTERIAL [None]
  - RASH MACULO-PAPULAR [None]
  - ANXIETY [None]
